FAERS Safety Report 23782735 (Version 3)
Quarter: 2024Q2

REPORT INFORMATION
  Report Type: Report from Study
  Country: DE (occurrence: DE)
  Receive Date: 20240425
  Receipt Date: 20240529
  Transmission Date: 20240717
  Serious: Yes (Hospitalization, Other)
  Sender: FDA-Public Use
  Company Number: DE-ABBVIE-5732426

PATIENT
  Sex: Male

DRUGS (2)
  1. CARBIDOPA\LEVODOPA [Suspect]
     Active Substance: CARBIDOPA\LEVODOPA
     Indication: Parkinson^s disease
     Dosage: MD: 8.0 ML; CRD: 4.4 ML/L; ED: 3.0ML, LAST ADMIN DATE 2024
     Route: 050
     Dates: start: 20240104
  2. CARBIDOPA\LEVODOPA [Suspect]
     Active Substance: CARBIDOPA\LEVODOPA
     Dosage: MD 8.0 ML; CRD 5.0 ML/H; ED 3.0 ML?FIRST ADMIN DATE WAS 2024
     Route: 050

REACTIONS (6)
  - Contusion [Recovered/Resolved]
  - Confusional state [Not Recovered/Not Resolved]
  - Fall [Recovered/Resolved]
  - Musculoskeletal stiffness [Not Recovered/Not Resolved]
  - Loss of consciousness [Unknown]
  - Hypokinesia [Not Recovered/Not Resolved]

NARRATIVE: CASE EVENT DATE: 20240101
